FAERS Safety Report 24799834 (Version 1)
Quarter: 2025Q1

REPORT INFORMATION
  Report Type: Spontaneous
  Country: CN (occurrence: CN)
  Receive Date: 20250102
  Receipt Date: 20250102
  Transmission Date: 20250409
  Serious: Yes (Hospitalization, Other)
  Sender: PFIZER
  Company Number: CN-PFIZER INC-PV202400168538

PATIENT
  Age: 73 Year
  Sex: Male
  Weight: 68 kg

DRUGS (2)
  1. VFEND [Suspect]
     Active Substance: VORICONAZOLE
     Indication: Aspergillus infection
     Dates: start: 20241212, end: 20241212
  2. VFEND [Suspect]
     Active Substance: VORICONAZOLE
     Dosage: 260 MG, 2X/DAY
     Route: 041
     Dates: start: 20241213, end: 20241215

REACTIONS (3)
  - Hallucination [Recovering/Resolving]
  - Listless [Unknown]
  - Off label use [Unknown]

NARRATIVE: CASE EVENT DATE: 20241212
